FAERS Safety Report 22824685 (Version 3)
Quarter: 2024Q1

REPORT INFORMATION
  Report Type: Spontaneous
  Country: US (occurrence: US)
  Receive Date: 20230815
  Receipt Date: 20240125
  Transmission Date: 20240410
  Serious: Yes (Other)
  Sender: FDA-Public Use
  Company Number: US-ANIPHARMA-2023-US-022422

PATIENT
  Age: 59 Year
  Sex: Female
  Weight: 53.98 kg

DRUGS (9)
  1. CORTICOTROPIN [Suspect]
     Active Substance: CORTICOTROPIN
     Indication: Nephrotic syndrome
     Dosage: INJECT 80 UNITS (1ML) SUBCUTANEOUSLY TWO TIMES PER WEEK / 40 UNITS EVERY OTHER WEEK
     Route: 058
     Dates: start: 20230624, end: 20231106
  2. SPIRONOLACTONE [Concomitant]
     Active Substance: SPIRONOLACTONE
     Route: 065
  3. METOLAZONE [Concomitant]
     Active Substance: METOLAZONE
     Route: 065
  4. TIZANIDINE HYDROCHLORIDE [Concomitant]
     Active Substance: TIZANIDINE HYDROCHLORIDE
     Route: 065
  5. LISINOPRIL [Concomitant]
     Active Substance: LISINOPRIL
     Route: 065
  6. FUROSEMIDE [Concomitant]
     Active Substance: FUROSEMIDE
     Route: 065
  7. ESTRACE [Concomitant]
     Active Substance: ESTRADIOL
     Route: 065
  8. VITAMIN D3 [Concomitant]
     Active Substance: CHOLECALCIFEROL
     Route: 065
  9. SAXAGLIPTIN HYDROCHLORIDE [Suspect]
     Active Substance: SAXAGLIPTIN HYDROCHLORIDE
     Route: 065
     Dates: start: 202310

REACTIONS (18)
  - Anger [Recovering/Resolving]
  - Psychomotor hyperactivity [Recovering/Resolving]
  - Paranoia [Recovering/Resolving]
  - Negative thoughts [Recovering/Resolving]
  - Disturbance in attention [Recovering/Resolving]
  - Weight decreased [Not Recovered/Not Resolved]
  - Type 2 diabetes mellitus [Unknown]
  - Personality change [Recovering/Resolving]
  - Unhealthy lifestyle [Recovering/Resolving]
  - Therapy cessation [Recovered/Resolved]
  - Depressed mood [Recovering/Resolving]
  - Emotional disorder [Recovering/Resolving]
  - Impulsive behaviour [Recovering/Resolving]
  - Panic attack [Recovering/Resolving]
  - Obsessive thoughts [Recovering/Resolving]
  - Stomatitis [Unknown]
  - Fungal infection [Unknown]
  - Condition aggravated [Recovering/Resolving]

NARRATIVE: CASE EVENT DATE: 20231013
